FAERS Safety Report 23597215 (Version 1)
Quarter: 2024Q1

REPORT INFORMATION
  Report Type: Spontaneous
  Country: FR (occurrence: FR)
  Receive Date: 20240305
  Receipt Date: 20240305
  Transmission Date: 20240409
  Serious: Yes (Hospitalization)
  Sender: FDA-Public Use
  Company Number: None

PATIENT
  Age: 91 Year
  Sex: Female

DRUGS (2)
  1. PANTOPRAZOLE [Suspect]
     Active Substance: PANTOPRAZOLE
     Indication: Antacid therapy
     Route: 048
     Dates: start: 20231229, end: 20240104
  2. CANDESARTAN [Suspect]
     Active Substance: CANDESARTAN
     Indication: Hypertension
     Route: 048
     Dates: start: 20231228, end: 20240104

REACTIONS (1)
  - Rash macular [Recovered/Resolved]

NARRATIVE: CASE EVENT DATE: 20240104
